FAERS Safety Report 7191707-4 (Version None)
Quarter: 2010Q4

REPORT INFORMATION
  Report Type: 
  Country: None (occurrence: None)
  Receive Date: 20101223
  Receipt Date: 20101217
  Transmission Date: 20110411
  Serious: Yes (Hospitalization)
  Sender: FDA-Public Use
  Company Number: KR-ROCHE-749400

PATIENT
  Sex: Female

DRUGS (19)
  1. TOCILIZUMAB [Suspect]
     Indication: RHEUMATOID ARTHRITIS
     Route: 042
     Dates: start: 20100618, end: 20101203
  2. BLINDED TOCILIZUMAB [Concomitant]
     Route: 042
     Dates: start: 20091231, end: 20100520
  3. METHOTREXATE [Concomitant]
     Route: 048
     Dates: start: 20090406, end: 20100718
  4. METHOTREXATE [Concomitant]
     Route: 048
     Dates: start: 20100803, end: 20100909
  5. METHOTREXATE [Concomitant]
     Route: 048
     Dates: start: 20100909
  6. HYDROXYCHLOROQUINE [Concomitant]
     Route: 048
     Dates: start: 20090902
  7. METHYLPREDNISOLONE [Concomitant]
     Route: 048
     Dates: start: 20050124, end: 20100811
  8. METHYLPREDNISOLONE [Concomitant]
     Route: 048
     Dates: start: 20100812
  9. TALNIFLUMATE [Concomitant]
     Route: 048
     Dates: start: 20080122
  10. FOLIC ACID [Concomitant]
     Route: 048
     Dates: start: 20030630
  11. CALCIUM GLUCONATE [Concomitant]
     Route: 048
     Dates: start: 20061211
  12. CALCIUM LACTATE [Concomitant]
     Route: 048
     Dates: start: 20061211
  13. ERGOCALCIFEROL [Concomitant]
     Route: 048
     Dates: start: 20061211
  14. PRECIPITATED CALCIUM CARBONATE [Concomitant]
     Route: 048
     Dates: start: 20061211
  15. RANITIDINE HYDROCHLORIDE [Concomitant]
     Route: 048
     Dates: start: 20090718
  16. AMLODIPINE BESYLATE [Concomitant]
     Route: 048
     Dates: start: 20090921
  17. CHLORPHENIRAMINE MALEATE [Concomitant]
     Route: 030
     Dates: start: 20091231
  18. PRAVASTATIN SODIUM [Concomitant]
     Route: 048
     Dates: start: 20100326
  19. EZETIMIBE [Concomitant]
     Route: 048
     Dates: start: 20100618, end: 20100715

REACTIONS (1)
  - MUSCULOSKELETAL CHEST PAIN [None]
